FAERS Safety Report 9406934 (Version 2)
Quarter: 2013Q3

REPORT INFORMATION
  Report Type: Spontaneous
  Country: US (occurrence: US)
  Receive Date: 20130718
  Receipt Date: 20130904
  Transmission Date: 20140515
  Serious: No
  Sender: FDA-Public Use
  Company Number: US-PFIZER INC-2013209086

PATIENT
  Age: 41 Year
  Sex: Female
  Weight: 62.13 kg

DRUGS (1)
  1. XELJANZ [Suspect]
     Indication: RHEUMATOID ARTHRITIS
     Dosage: 5 MG, TWICE A DAY
     Route: 048
     Dates: start: 20130311, end: 20130712

REACTIONS (2)
  - General physical health deterioration [Unknown]
  - Drug ineffective [Unknown]
